FAERS Safety Report 23598006 (Version 1)
Quarter: 2024Q1

REPORT INFORMATION
  Report Type: Spontaneous
  Country: AU (occurrence: AU)
  Receive Date: 20240305
  Receipt Date: 20240305
  Transmission Date: 20240410
  Serious: Yes (Other)
  Sender: FDA-Public Use
  Company Number: AU-GE HEALTHCARE-2024CSU002027

PATIENT
  Age: 72 Year
  Sex: Female
  Weight: 65 kg

DRUGS (1)
  1. OMNIPAQUE [Suspect]
     Active Substance: IOHEXOL
     Indication: Computerised tomogram intestine
     Dosage: 90 ML, TOTAL
     Route: 042
     Dates: start: 20240229, end: 20240229

REACTIONS (4)
  - Dysphonia [Recovering/Resolving]
  - Sneezing [Recovering/Resolving]
  - Lacrimation increased [Recovering/Resolving]
  - Urticaria [Recovering/Resolving]

NARRATIVE: CASE EVENT DATE: 20240229
